FAERS Safety Report 10721825 (Version 1)
Quarter: 2015Q1

REPORT INFORMATION
  Report Type: Spontaneous
  Country: US (occurrence: US)
  Receive Date: 20150119
  Receipt Date: 20150119
  Transmission Date: 20150721
  Serious: No
  Sender: FDA-Public Use
  Company Number: US-BAUSCH-BL-2014-001732

PATIENT
  Sex: Female

DRUGS (2)
  1. OCUVITE ADULT 50+ [Concomitant]
     Indication: PRODUCT USED FOR UNKNOWN INDICATION
  2. ALAWAY [Suspect]
     Active Substance: KETOTIFEN FUMARATE
     Indication: EYE ALLERGY
     Dosage: USED TWICE IN ONE DAY
     Route: 047
     Dates: start: 201403

REACTIONS (2)
  - Spider vein [Not Recovered/Not Resolved]
  - Photopsia [Not Recovered/Not Resolved]

NARRATIVE: CASE EVENT DATE: 201403
